FAERS Safety Report 9686098 (Version 2)
Quarter: 2013Q4

REPORT INFORMATION
  Report Type: Spontaneous
  Country: US (occurrence: US)
  Receive Date: 20131113
  Receipt Date: 20131113
  Transmission Date: 20140711
  Serious: No
  Sender: FDA-Public Use
  Company Number: US-ALLERGAN-1207122US

PATIENT
  Age: 61 Year
  Sex: Female

DRUGS (3)
  1. COMBIGAN[R] [Suspect]
     Indication: GLAUCOMA
     Dosage: 2 DROPS DAILY IN LEFT EYE
     Route: 047
     Dates: start: 20120512, end: 20120514
  2. COMBIGAN[R] [Suspect]
     Dosage: UNK
     Route: 047
  3. LOTEMAX [Concomitant]
     Indication: GLAUCOMA
     Dosage: UNK
     Route: 047
     Dates: start: 2010

REACTIONS (9)
  - Episcleritis [Recovered/Resolved]
  - Scleritis [Recovered/Resolved]
  - Foreign body in eye [Unknown]
  - Eye haemorrhage [Recovering/Resolving]
  - Eye pain [Unknown]
  - Lacrimation increased [Unknown]
  - Ocular hyperaemia [Recovering/Resolving]
  - Eye pain [Not Recovered/Not Resolved]
  - Eye discharge [Unknown]
